FAERS Safety Report 5999082-5 (Version None)
Quarter: 2008Q4

REPORT INFORMATION
  Report Type: 
  Country: None (occurrence: None)
  Receive Date: 20081211
  Receipt Date: 20081204
  Transmission Date: 20090506
  Serious: Yes (Other)
  Sender: FDA-Public Use
  Company Number: TRP_05983_2008

PATIENT
  Sex: Female

DRUGS (3)
  1. RIBASPHERE [Suspect]
     Indication: HEPATITIS C VIRUS TEST
     Dosage: (1000 MG, DAILY)
     Dates: start: 20080922, end: 20081115
  2. PEGASYS [Suspect]
     Indication: HEPATITIS C VIRUS TEST
     Dosage: (180 UG 1X/WEEK)
     Dates: start: 20080922, end: 20081117
  3. INTERFERON ALFA [Suspect]
     Indication: DRUG USE FOR UNKNOWN INDICATION

REACTIONS (4)
  - ASTHENIA [None]
  - BURNING SENSATION [None]
  - INTRACRANIAL ANEURYSM [None]
  - PAIN [None]
